FAERS Safety Report 7633592-X (Version None)
Quarter: 2011Q3

REPORT INFORMATION
  Report Type: 
  Country: None (occurrence: None)
  Receive Date: 20110725
  Receipt Date: 20110705
  Transmission Date: 20111222
  Serious: Yes (Hospitalization)
  Sender: FDA-Public Use
  Company Number: US-GLAXOSMITHKLINE-A0920983A

PATIENT
  Age: 76 Year
  Sex: Male

DRUGS (7)
  1. ZANTAC [Concomitant]
  2. AVANDIA [Suspect]
     Indication: DIABETES MELLITUS
     Dosage: 8MG PER DAY
     Route: 048
     Dates: start: 20081010, end: 20100801
  3. RANITIDINE [Concomitant]
  4. METOPROLOL TARTRATE [Concomitant]
  5. INSULIN [Concomitant]
  6. PAROXETINE HCL [Concomitant]
  7. SEROQUEL [Concomitant]

REACTIONS (4)
  - MYOCARDIAL INFARCTION [None]
  - ISCHAEMIC CARDIOMYOPATHY [None]
  - ARTERIOSCLEROSIS [None]
  - CORONARY ARTERY DISEASE [None]
